FAERS Safety Report 5287640-5 (Version None)
Quarter: 2007Q1

REPORT INFORMATION
  Report Type: 
  Country: None (occurrence: None)
  Receive Date: 20070105
  Receipt Date: 20060411
  Transmission Date: 20070707
  Serious: Yes (Hospitalization)
  Sender: FDA-Public Use
  Company Number: 20060076

PATIENT
  Age: 84 Year
  Sex: Female
  Weight: 55.3388 kg

DRUGS (1)
  1. VENOFER [Suspect]
     Dosage: 500 MG OVER 4 HOURS 20 MG/ML
     Dates: start: 20060206, end: 20060206

REACTIONS (7)
  - CYANOSIS [None]
  - DIZZINESS [None]
  - HYPERHIDROSIS [None]
  - HYPERSENSITIVITY [None]
  - HYPOTENSION [None]
  - MUSCLE TWITCHING [None]
  - OEDEMA PERIPHERAL [None]
